FAERS Safety Report 6111526-7 (Version None)
Quarter: 2009Q1

REPORT INFORMATION
  Report Type: 
  Country: None (occurrence: None)
  Receive Date: 20090309
  Receipt Date: 20090225
  Transmission Date: 20090719
  Serious: Yes (Hospitalization, Other)
  Sender: FDA-Public Use
  Company Number: 2007JP001177

PATIENT
  Age: 38 Year
  Sex: Female
  Weight: 55.6 kg

DRUGS (11)
  1. PROGRAF [Suspect]
     Indication: STEM CELL TRANSPLANT
     Dosage: 0.03 MG/KG, CONTINUOUS, IV DRIP
     Route: 042
     Dates: start: 20050314, end: 20050401
  2. ACYCLOVIR [Suspect]
     Indication: HERPES SIMPLEX
     Dosage: 250 MG, TID, IV DRIP
     Route: 041
     Dates: start: 20050310, end: 20050329
  3. SOLU-CORTEF [Suspect]
     Indication: FUNGAL INFECTION
     Dosage: 25 MG, TID, IV DRIP
     Route: 041
     Dates: start: 20050321, end: 20050410
  4. METHOTREXATE FORMULATION [Concomitant]
  5. TARGOCID [Concomitant]
  6. UNASYN S (AMPICILLIN SODIUM, SULBACTAM SODIUM) INJECTION [Concomitant]
  7. PAZUCROSS (PAZUFLOXACIN) INJECTION [Concomitant]
  8. MINOCYCLINE HCL [Concomitant]
  9. FUNGUARD (MICAFUNGIN) INJECTION [Concomitant]
  10. NEUTOGIN (LENOGRASTIM) INJECTION [Concomitant]
  11. ANPEC (MORPHINE HYDROCHLORIDE) INJECTION [Concomitant]

REACTIONS (8)
  - ACUTE GRAFT VERSUS HOST DISEASE [None]
  - DIARRHOEA [None]
  - DYSAESTHESIA [None]
  - HUMAN HERPESVIRUS 6 INFECTION [None]
  - HYPOMAGNESAEMIA [None]
  - NEUTROPENIA [None]
  - OSTEOMYELITIS [None]
  - REVERSIBLE POSTERIOR LEUKOENCEPHALOPATHY SYNDROME [None]
